FAERS Safety Report 9881743 (Version 1)
Quarter: 2014Q1

REPORT INFORMATION
  Report Type: Spontaneous
  Country: DE (occurrence: DE)
  Receive Date: 20140207
  Receipt Date: 20140207
  Transmission Date: 20141002
  Serious: Yes (Other)
  Sender: FDA-Public Use
  Company Number: CHNY2014DE000644

PATIENT
  Sex: Female

DRUGS (1)
  1. VOLTAREN DOLO [Suspect]
     Indication: BACK PAIN
     Dosage: 50 MG, UNK
     Route: 048
     Dates: start: 20140109, end: 20140123

REACTIONS (3)
  - Skin exfoliation [Recovering/Resolving]
  - Blood magnesium abnormal [Recovering/Resolving]
  - Hepatic enzyme increased [Recovering/Resolving]
